FAERS Safety Report 4991260-7 (Version None)
Quarter: 2006Q2

REPORT INFORMATION
  Report Type: 
  Country: None (occurrence: None)
  Receive Date: 20060428
  Receipt Date: 20060410
  Transmission Date: 20061013
  Serious: Yes (Hospitalization)
  Sender: FDA-Public Use
  Company Number: US200604002038

PATIENT
  Sex: Female

DRUGS (1)
  1. CYMBALTA [Suspect]

REACTIONS (4)
  - MYALGIA [None]
  - NERVE INJURY [None]
  - RENAL FAILURE ACUTE [None]
  - RHABDOMYOLYSIS [None]
